FAERS Safety Report 11318549 (Version 1)
Quarter: 2015Q3

REPORT INFORMATION
  Report Type: Report from Study
  Country: US (occurrence: US)
  Receive Date: 20150729
  Receipt Date: 20150729
  Transmission Date: 20151125
  Serious: Yes (Hospitalization)
  Sender: FDA-Public Use
  Company Number: PHEH2015US014192

PATIENT
  Sex: Female

DRUGS (2)
  1. TOBI PODHALER [Suspect]
     Active Substance: TOBRAMYCIN
     Indication: CYSTIC FIBROSIS
     Dosage: 112 MG, QD
     Route: 055
     Dates: start: 2014
  2. TOBI PODHALER [Suspect]
     Active Substance: TOBRAMYCIN
     Indication: BACTERIAL DISEASE CARRIER

REACTIONS (1)
  - Infective pulmonary exacerbation of cystic fibrosis [Unknown]
